FAERS Safety Report 8915384 (Version 2)
Quarter: 2013Q1

REPORT INFORMATION
  Report Type: Spontaneous
  Country: US (occurrence: US)
  Receive Date: 20121119
  Receipt Date: 20130115
  Transmission Date: 20140127
  Serious: No
  Sender: FDA-Public Use
  Company Number: US-PFIZER INC-2012287995

PATIENT
  Age: 38 Year
  Sex: Female
  Weight: 86.62 kg

DRUGS (5)
  1. CHANTIX [Suspect]
     Indication: SMOKING CESSATION THERAPY
     Dosage: 0.5 MG, DAILY
     Route: 048
     Dates: start: 201012, end: 201012
  2. CHANTIX [Suspect]
     Dosage: HALF OF 1MG IN THE MORNING AND HALF IN THE EVENING
     Route: 048
     Dates: start: 201012, end: 2011
  3. LAMICTAL [Concomitant]
     Indication: BIPOLAR DISORDER
     Dosage: 200 MG, DAILY
  4. CLONAZEPAM [Concomitant]
     Indication: DEPRESSION
     Dosage: 1 MG, 3X/DAY
  5. TOPAMAX [Concomitant]
     Indication: BIPOLAR DISORDER
     Dosage: 100 MG, DAILY

REACTIONS (3)
  - Cough [Unknown]
  - Stress [Unknown]
  - Mental disorder [Unknown]
